FAERS Safety Report 18806960 (Version 1)
Quarter: 2021Q1

REPORT INFORMATION
  Report Type: Spontaneous
  Country: PT (occurrence: PT)
  Receive Date: 20210129
  Receipt Date: 20210129
  Transmission Date: 20210419
  Serious: Yes (Hospitalization)
  Sender: FDA-Public Use
  Company Number: PT-TEVA-2021-PT-1874555

PATIENT
  Age: 28 Year
  Sex: Female

DRUGS (9)
  1. EPIRUBICIN [Suspect]
     Active Substance: EPIRUBICIN
     Indication: NEPHROBLASTOMA
     Route: 065
  2. ETOPOSIDE. [Suspect]
     Active Substance: ETOPOSIDE
     Indication: METASTASIS
  3. IFOSFAMIDE. [Suspect]
     Active Substance: IFOSFAMIDE
     Indication: NEPHROBLASTOMA
     Route: 065
  4. EPIRUBICIN [Suspect]
     Active Substance: EPIRUBICIN
     Indication: METASTASIS
  5. ETHINYLESTRADIOL/GESTODENE [Suspect]
     Active Substance: ETHINYL ESTRADIOL\GESTODENE
     Indication: CONTRACEPTION
     Route: 048
  6. IFOSFAMIDE. [Suspect]
     Active Substance: IFOSFAMIDE
     Indication: METASTASIS
  7. ETOPOSIDE. [Suspect]
     Active Substance: ETOPOSIDE
     Indication: NEPHROBLASTOMA
     Route: 065
  8. CARBOPLATIN. [Suspect]
     Active Substance: CARBOPLATIN
     Indication: NEPHROBLASTOMA
     Route: 065
  9. CARBOPLATIN. [Suspect]
     Active Substance: CARBOPLATIN
     Indication: METASTASIS

REACTIONS (5)
  - Cholestasis [Recovered/Resolved]
  - Normochromic normocytic anaemia [Recovered/Resolved]
  - Vena cava thrombosis [Recovered/Resolved]
  - Inferior vena cava syndrome [Recovered/Resolved]
  - Haemoglobinuria [Recovered/Resolved]
